FAERS Safety Report 6194831-8 (Version None)
Quarter: 2009Q2

REPORT INFORMATION
  Report Type: 
  Country: None (occurrence: None)
  Receive Date: 20090515
  Receipt Date: 20090501
  Transmission Date: 20091009
  Serious: Yes (Hospitalization)
  Sender: FDA-Public Use
  Company Number: 2009S1007636

PATIENT
  Age: 76 Year
  Sex: Female

DRUGS (1)
  1. VALPROATE SODIUM [Suspect]
     Indication: EPILEPSY
     Dates: start: 20040101, end: 20090101

REACTIONS (4)
  - CONDITION AGGRAVATED [None]
  - DRUG INEFFECTIVE [None]
  - EPILEPSY [None]
  - PRODUCT SUBSTITUTION ISSUE [None]
